FAERS Safety Report 11202356 (Version 5)
Quarter: 2017Q3

REPORT INFORMATION
  Report Type: Spontaneous
  Country: US (occurrence: US)
  Receive Date: 20150619
  Receipt Date: 20170711
  Transmission Date: 20171127
  Serious: Yes (Other)
  Sender: FDA-Public Use
  Company Number: US-PFIZER INC-2015201893

PATIENT
  Age: 73 Year
  Sex: Female

DRUGS (6)
  1. LYRICA [Suspect]
     Active Substance: PREGABALIN
     Indication: FIBROMYALGIA
     Dosage: 150 MG, 2X/DAY
  2. LYRICA [Suspect]
     Active Substance: PREGABALIN
     Dosage: 50 MG, UNK
  3. METFORMIN [Concomitant]
     Active Substance: METFORMIN HYDROCHLORIDE
     Indication: TYPE 2 DIABETES MELLITUS
     Dosage: 850 MG, 1X/DAY
  4. OMEPRAZOLE. [Concomitant]
     Active Substance: OMEPRAZOLE
     Indication: ABDOMINAL PAIN UPPER
     Dosage: UNK
  5. ADVIL [Concomitant]
     Active Substance: IBUPROFEN
     Indication: HEADACHE
     Dosage: ONCE IN A WHILE
  6. SUCRALFATE. [Concomitant]
     Active Substance: SUCRALFATE
     Indication: IRRITABLE BOWEL SYNDROME
     Dosage: 1 G, 4X/DAY
     Route: 048

REACTIONS (20)
  - Loss of consciousness [Recovering/Resolving]
  - Disease recurrence [Unknown]
  - Feeding disorder [Recovering/Resolving]
  - Spinal cord injury [Unknown]
  - Drug dispensing error [Unknown]
  - Tremor [Recovering/Resolving]
  - Craniocerebral injury [Unknown]
  - Weight decreased [Unknown]
  - Hyperacusis [Unknown]
  - Diplopia [Not Recovered/Not Resolved]
  - Neck pain [Unknown]
  - Headache [Recovering/Resolving]
  - Dysstasia [Unknown]
  - Asthenopia [Unknown]
  - Visual impairment [Unknown]
  - Head injury [Unknown]
  - Concussion [Unknown]
  - Irritable bowel syndrome [Recovering/Resolving]
  - Memory impairment [Unknown]
  - Balance disorder [Unknown]

NARRATIVE: CASE EVENT DATE: 201706
